FAERS Safety Report 10142749 (Version 1)
Quarter: 2014Q2

REPORT INFORMATION
  Report Type: Spontaneous
  Country: US (occurrence: None)
  Receive Date: 20140425
  Receipt Date: 20140425
  Transmission Date: 20141212
  Serious: Yes (Other)
  Sender: FDA-Public Use
  Company Number: UTC-047439

PATIENT
  Age: 60 Year
  Sex: Female

DRUGS (3)
  1. TYVASO [Suspect]
     Indication: PULMONARY ARTERIAL HYPERTENSION
     Route: 055
     Dates: start: 20120622
  2. WARFARIN (WARFARIN) [Concomitant]
  3. ADCIRCA (TADAFINIL) [Concomitant]

REACTIONS (2)
  - Haemorrhage [None]
  - Drug intolerance [None]
